FAERS Safety Report 20334399 (Version 2)
Quarter: 2022Q1

REPORT INFORMATION
  Report Type: Report from Study
  Country: GB (occurrence: GB)
  Receive Date: 20220114
  Receipt Date: 20220124
  Transmission Date: 20220423
  Serious: Yes (Hospitalization)
  Sender: FDA-Public Use
  Company Number: GB-JNJFOC-20211126247

PATIENT
  Age: 67 Year
  Sex: Female

DRUGS (2)
  1. STELARA [Suspect]
     Active Substance: USTEKINUMAB
     Indication: Crohn^s disease
     Route: 058
  2. STELARA [Suspect]
     Active Substance: USTEKINUMAB

REACTIONS (6)
  - Diarrhoea [Recovering/Resolving]
  - Abdominal pain [Recovered/Resolved]
  - Chills [Recovering/Resolving]
  - Back pain [Recovering/Resolving]
  - Therapeutic product effect decreased [Unknown]
  - Weight decreased [Unknown]

NARRATIVE: CASE EVENT DATE: 20211101
